FAERS Safety Report 9956380 (Version 1)
Quarter: 2014Q1

REPORT INFORMATION
  Report Type: Spontaneous
  Country: US (occurrence: US)
  Receive Date: 20140304
  Receipt Date: 20140304
  Transmission Date: 20141002
  Serious: Yes (Death)
  Sender: FDA-Public Use
  Company Number: US-ROCHE-1355128

PATIENT
  Age: 61 Year
  Sex: Female

DRUGS (4)
  1. XELODA [Suspect]
     Indication: NEOPLASM MALIGNANT
     Route: 048
     Dates: start: 20131227, end: 20140206
  2. EFFEXOR XR [Concomitant]
     Indication: DEPRESSION
     Route: 048
  3. PROCHLORPERAZINE [Concomitant]
     Indication: NAUSEA
     Dosage: AS NEEDED
     Route: 048
  4. GABAPENTIN [Concomitant]
     Indication: PAIN
     Route: 048

REACTIONS (1)
  - Neoplasm malignant [Fatal]
